FAERS Safety Report 9585749 (Version 3)
Quarter: 2014Q1

REPORT INFORMATION
  Report Type: Spontaneous
  Country: CH (occurrence: None)
  Receive Date: 20131001
  Receipt Date: 20140224
  Transmission Date: 20141002
  Serious: Yes (Other)
  Sender: FDA-Public Use
  Company Number: 20130508

PATIENT
  Age: 31 Year
  Sex: Female

DRUGS (2)
  1. FERINJECT [Suspect]
     Indication: IRON DEFICIENCY
     Dosage: 300 MG IN 100 ML NACL
     Dates: start: 20130906, end: 20130906
  2. CORTANCYL (PREDNISONE) [Concomitant]

REACTIONS (4)
  - Exposure during pregnancy [None]
  - Rash [None]
  - Dyspnoea [None]
  - Chest pain [None]
